FAERS Safety Report 20517137 (Version 1)
Quarter: 2022Q1

REPORT INFORMATION
  Report Type: Spontaneous
  Country: US (occurrence: US)
  Receive Date: 20220225
  Receipt Date: 20220225
  Transmission Date: 20220424
  Serious: Yes (Hospitalization, Other)
  Sender: FDA-Public Use
  Company Number: US-ALS-000530

PATIENT
  Age: 28 Year
  Sex: Female

DRUGS (2)
  1. QUETIAPINE [Suspect]
     Active Substance: QUETIAPINE
     Indication: Bipolar I disorder
     Dosage: 800 MG NIGHTLY
     Route: 065
  2. QUETIAPINE [Suspect]
     Active Substance: QUETIAPINE
     Indication: Bipolar I disorder
     Dosage: 400 MG NIGHTLY
     Route: 065

REACTIONS (17)
  - Tachycardia [Unknown]
  - Nausea [Unknown]
  - Vomiting [Unknown]
  - Lethargy [Unknown]
  - Anxiety [Unknown]
  - Disorganised speech [Unknown]
  - Blepharospasm [Unknown]
  - Muscle spasms [Unknown]
  - Eye movement disorder [Unknown]
  - Mental status changes [Unknown]
  - Electrocardiogram QT prolonged [Unknown]
  - Sedation [Unknown]
  - Dystonia [Unknown]
  - Lactic acidosis [Unknown]
  - Intentional overdose [Unknown]
  - Toxicity to various agents [Unknown]
  - Food interaction [Unknown]
